FAERS Safety Report 7410077-7 (Version None)
Quarter: 2011Q2

REPORT INFORMATION
  Report Type: 
  Country: None (occurrence: None)
  Receive Date: 20110412
  Receipt Date: 20110411
  Transmission Date: 20111010
  Serious: Yes (Other)
  Sender: FDA-Public Use
  Company Number: US-PFIZER INC-2010072879

PATIENT
  Sex: Female
  Weight: 92.971 kg

DRUGS (16)
  1. PRISTIQ [Suspect]
     Indication: DEPRESSION
     Dosage: 50 MG, DAILY
     Dates: start: 20100524
  2. ABILIFY [Suspect]
     Indication: DEPRESSION
     Dosage: UNK
  3. ELAVIL [Concomitant]
     Dosage: 10 MG, 1X/DAY
  4. PRISTIQ [Suspect]
     Dosage: 50 MG, 1X/2 DAY
     Dates: start: 20100601, end: 20100601
  5. BENICAR [Concomitant]
     Dosage: 40/25, DAILY
  6. TYLENOL (CAPLET) [Concomitant]
     Dosage: UNK, 2X/DAY
  7. CALCIUM WITH VITAMIN D [Concomitant]
     Dosage: UNK
  8. PROTONIX [Concomitant]
     Dosage: 40 MG, UNK
  9. NEURONTIN [Suspect]
     Indication: NEUROPATHY PERIPHERAL
     Dosage: 300 MG, DAILY
  10. ZOLOFT [Suspect]
     Indication: DEPRESSION
     Dosage: HIGH DOSE
  11. PRISTIQ [Suspect]
     Dosage: 50 MG, 1X/3 DAY
     Dates: start: 20100601, end: 20100601
  12. PRANDIN [Concomitant]
     Dosage: 2 MG, UNK
  13. ZOLOFT [Suspect]
     Dosage: 25 MG, DAILY
  14. CELEBREX [Suspect]
     Indication: ARTHRITIS
     Dosage: UNK
  15. PRISTIQ [Suspect]
     Dosage: 50 MG, 1X/4 DAY
     Dates: start: 20100607
  16. ALPHA BETIC [Concomitant]
     Dosage: UNK

REACTIONS (7)
  - AGITATION [None]
  - ARTHRITIS [None]
  - FATIGUE [None]
  - DEPRESSION [None]
  - WEIGHT INCREASED [None]
  - NEUROPATHY PERIPHERAL [None]
  - MOOD ALTERED [None]
